FAERS Safety Report 15001529 (Version 2)
Quarter: 2018Q4

REPORT INFORMATION
  Report Type: Spontaneous
  Country: FR (occurrence: FR)
  Receive Date: 20180612
  Receipt Date: 20181017
  Transmission Date: 20190204
  Serious: Yes (Death, Hospitalization)
  Sender: FDA-Public Use
  Company Number: FR-PFIZER INC-2018233173

PATIENT
  Age: 79 Year
  Sex: Female
  Weight: 52 kg

DRUGS (9)
  1. BISOCE [Suspect]
     Active Substance: BISOPROLOL
     Indication: CARDIAC FAILURE
     Dosage: 1 DF, ONCE A DAY
     Route: 048
  2. NOVONORM [Concomitant]
     Active Substance: REPAGLINIDE
     Dosage: UNK
     Route: 048
  3. ELIQUIS [Concomitant]
     Active Substance: APIXABAN
     Indication: PULMONARY EMBOLISM
     Dosage: 2 DF, 1X/DAY
     Route: 048
  4. ENTRESTO [Suspect]
     Active Substance: SACUBITRIL\VALSARTAN
     Indication: CARDIAC FAILURE
     Dosage: 2 DF, ONCE A DAY
     Route: 048
     Dates: start: 201710, end: 20171221
  5. INSPRA [Suspect]
     Active Substance: EPLERENONE
     Indication: CARDIAC FAILURE
     Dosage: 1 DF, ONCE A DAY
     Route: 048
  6. CORTANCYL [Concomitant]
     Active Substance: PREDNISONE
     Dosage: 0.5 DF, 1X/DAY
     Route: 048
  7. LASILIX /00032601/ [Suspect]
     Active Substance: FUROSEMIDE
     Dosage: 1 DF, ONCE A DAY
     Route: 048
  8. DUOPLAVIN [Concomitant]
     Active Substance: ASPIRIN\CLOPIDOGREL
     Indication: PULMONARY EMBOLISM
     Dosage: 1 DF, 1X/DAY
     Route: 048
  9. INEXIUM /01479302/ [Concomitant]
     Active Substance: ESOMEPRAZOLE MAGNESIUM
     Dosage: 1 DF, 1X/DAY
     Route: 048

REACTIONS (2)
  - Pruritus [Recovered/Resolved]
  - Rash erythematous [Recovered/Resolved]

NARRATIVE: CASE EVENT DATE: 20171205
